FAERS Safety Report 25001934 (Version 3)
Quarter: 2025Q1

REPORT INFORMATION
  Report Type: Spontaneous
  Country: US (occurrence: US)
  Receive Date: 20250224
  Receipt Date: 20250320
  Transmission Date: 20250409
  Serious: No
  Sender: HETERO
  Company Number: US-HETERO-HET2025US00696

PATIENT
  Age: 75 Year
  Sex: Male
  Weight: 104 kg

DRUGS (3)
  1. DABIGATRAN ETEXILATE [Suspect]
     Active Substance: DABIGATRAN ETEXILATE
     Indication: Anticoagulant therapy
     Route: 048
     Dates: start: 20250131, end: 20250209
  2. ASPIRIN [Concomitant]
     Active Substance: ASPIRIN
     Indication: Pain
     Route: 065
  3. GABAPENTIN [Concomitant]
     Active Substance: GABAPENTIN
     Indication: Blood cholesterol
     Route: 065

REACTIONS (3)
  - Insomnia [Unknown]
  - Pruritus [Recovered/Resolved]
  - Rash [Not Recovered/Not Resolved]

NARRATIVE: CASE EVENT DATE: 20250202
